FAERS Safety Report 17899734 (Version 1)
Quarter: 2020Q2

REPORT INFORMATION
  Report Type: Spontaneous
  Country: US (occurrence: US)
  Receive Date: 20200615
  Receipt Date: 20200615
  Transmission Date: 20200714
  Serious: No
  Sender: FDA-Public Use
  Company Number: None

PATIENT
  Age: 51 Year
  Sex: Male
  Weight: 107 kg

DRUGS (1)
  1. PRAZOSIN (PRAZOSIN HCL 1MG CAP) [Suspect]
     Active Substance: PRAZOSIN HYDROCHLORIDE
     Indication: NIGHTMARE
     Route: 048
     Dates: start: 20170915, end: 20171115

REACTIONS (1)
  - Nightmare [None]

NARRATIVE: CASE EVENT DATE: 20171115
